FAERS Safety Report 5127464-2 (Version None)
Quarter: 2006Q4

REPORT INFORMATION
  Report Type: 
  Country: None (occurrence: None)
  Receive Date: 20061013
  Receipt Date: 20061013
  Transmission Date: 20070319
  Serious: Yes (Other)
  Sender: FDA-Public Use
  Company Number: None

PATIENT
  Age: 60 Year
  Sex: Male

DRUGS (2)
  1. PHENAZOPYRIDINE HCL TAB [Suspect]
     Indication: ANALGESIC THERAPY
     Dosage: ORAL;200 MILLIGRAM
     Route: 048
     Dates: start: 20060720, end: 20060727
  2. PHENAZOPYRIDINE HCL TAB [Suspect]
     Indication: URINARY TRACT DISORDER
     Dosage: ORAL;200 MILLIGRAM
     Route: 048
     Dates: start: 20060720, end: 20060727

REACTIONS (4)
  - PRURITUS [None]
  - RASH ERYTHEMATOUS [None]
  - RASH GENERALISED [None]
  - RASH MACULAR [None]
